FAERS Safety Report 22126501 (Version 3)
Quarter: 2023Q2

REPORT INFORMATION
  Report Type: Spontaneous
  Country: US (occurrence: US)
  Receive Date: 20230322
  Receipt Date: 20230425
  Transmission Date: 20230722
  Serious: No
  Sender: FDA-Public Use
  Company Number: US-ALLERGAN-2301270US

PATIENT
  Age: 53 Year
  Sex: Female

DRUGS (2)
  1. QULIPTA [Suspect]
     Active Substance: ATOGEPANT
     Indication: Product used for unknown indication
     Dosage: UNK
     Dates: start: 20220601
  2. UBRELVY [Suspect]
     Active Substance: UBROGEPANT
     Indication: Product used for unknown indication

REACTIONS (2)
  - Product dose omission issue [Unknown]
  - Migraine [Unknown]

NARRATIVE: CASE EVENT DATE: 20230101
